FAERS Safety Report 7707126-5 (Version None)
Quarter: 2011Q3

REPORT INFORMATION
  Report Type: 
  Country: None (occurrence: None)
  Receive Date: 20110824
  Receipt Date: 20110816
  Transmission Date: 20111222
  Serious: Yes (Hospitalization)
  Sender: FDA-Public Use
  Company Number: JP-NOVOPROD-328966

PATIENT

DRUGS (11)
  1. NOVORAPID CHU PENFILL [Suspect]
     Dosage: 15 U QD (5-5-5)
     Dates: start: 20110610
  2. NOVORAPID CHU PENFILL [Suspect]
     Dosage: 15 U QD (5-5-5)
     Dates: start: 20100708
  3. LEVEMIR [Concomitant]
     Dosage: 5 UNK, UNK
     Dates: start: 20090528
  4. VICTOZA [Concomitant]
     Indication: TYPE 2 DIABETES MELLITUS
     Dosage: 0.3 MG, QD IN THE MORNING MONOTHERAPY
     Route: 058
     Dates: start: 20110315
  5. NOVORAPID CHU PENFILL [Suspect]
     Dosage: 12 U QD (4-4-4)
     Route: 058
     Dates: start: 20110501
  6. LEVEMIR [Concomitant]
     Indication: TYPE 2 DIABETES MELLITUS
     Dosage: 5 UNK, UNK
     Route: 065
     Dates: start: 20090406
  7. NOVORAPID CHU PENFILL [Suspect]
     Indication: TYPE 2 DIABETES MELLITUS
     Dosage: 12 U QD (4-4-4)
     Route: 058
     Dates: start: 20090319
  8. NOVORAPID CHU PENFILL [Suspect]
     Dosage: 23 U QD (10-7-6)
     Route: 058
     Dates: start: 20090528, end: 20110315
  9. VICTOZA [Concomitant]
     Dosage: 0.6 MG, UNK
     Route: 058
     Dates: start: 20110323, end: 20110501
  10. NOVORAPID CHU PENFILL [Suspect]
     Dosage: 21 U QD (6-6-9), AT DINNER TIME
     Route: 058
     Dates: start: 20090326
  11. LEVEMIR [Concomitant]
     Dosage: UNK
     Dates: start: 20090625

REACTIONS (2)
  - DIABETIC RETINOPATHY [None]
  - RETINAL EXUDATES [None]
